APPROVED DRUG PRODUCT: COLESTIPOL HYDROCHLORIDE
Active Ingredient: COLESTIPOL HYDROCHLORIDE
Strength: 5GM/SCOOPFUL
Dosage Form/Route: GRANULE;ORAL
Application: A077277 | Product #001 | TE Code: AB
Applicant: IMPAX LABORATORIES INC
Approved: May 2, 2006 | RLD: No | RS: No | Type: RX